FAERS Safety Report 19259122 (Version 5)
Quarter: 2024Q3

REPORT INFORMATION
  Report Type: Spontaneous
  Country: US (occurrence: US)
  Receive Date: 20210514
  Receipt Date: 20240724
  Transmission Date: 20241017
  Serious: Yes (Other)
  Sender: PFIZER
  Company Number: US-PFIZER INC-2021226042

PATIENT
  Age: 53 Year
  Sex: Female
  Weight: 95.25 kg

DRUGS (1)
  1. IBRANCE [Suspect]
     Active Substance: PALBOCICLIB
     Indication: Breast cancer metastatic
     Dosage: TAKE 1 TABLET BY MOUTH DAILY FOR 147 DAYS 1 TABLET DAILY W/FOOD X21 DAYS, THEN OFF 7 DAYS.
     Route: 048
     Dates: start: 2019

REACTIONS (3)
  - Osteoarthritis [Not Recovered/Not Resolved]
  - Cerebral disorder [Unknown]
  - COVID-19 [Unknown]

NARRATIVE: CASE EVENT DATE: 20200101
